FAERS Safety Report 21177206 (Version 1)
Quarter: 2022Q3

REPORT INFORMATION
  Report Type: Report from Study
  Country: EG (occurrence: EG)
  Receive Date: 20220805
  Receipt Date: 20220805
  Transmission Date: 20221027
  Serious: Yes (Hospitalization, Other)
  Sender: FDA-Public Use
  Company Number: EG-NOVARTISPH-NVSC2022EG172668

PATIENT
  Sex: Female

DRUGS (1)
  1. GILENYA [Suspect]
     Active Substance: FINGOLIMOD HYDROCHLORIDE
     Indication: Multiple sclerosis
     Dosage: 0.5 MG, QD
     Route: 048
     Dates: start: 2019

REACTIONS (13)
  - Multiple sclerosis [Recovered/Resolved]
  - Hypoaesthesia [Recovered/Resolved]
  - Pain [Recovered/Resolved]
  - Vision blurred [Recovered/Resolved]
  - Eye movement disorder [Recovered/Resolved]
  - Strabismus [Recovered/Resolved]
  - Lethargy [Recovered/Resolved]
  - Somnolence [Recovered/Resolved]
  - Hepatic enzyme increased [Recovered/Resolved]
  - Abdominal pain upper [Recovering/Resolving]
  - Stomatitis [Recovered/Resolved]
  - Eating disorder [Recovered/Resolved]
  - Fungal infection [Recovered/Resolved]

NARRATIVE: CASE EVENT DATE: 20190101
